FAERS Safety Report 5489122-4 (Version None)
Quarter: 2007Q4

REPORT INFORMATION
  Report Type: 
  Country: None (occurrence: None)
  Receive Date: 20071005
  Receipt Date: 20070724
  Transmission Date: 20080405
  Serious: Yes (Disabling)
  Sender: FDA-Public Use
  Company Number: PHEH2007US10812

PATIENT
  Age: 76 Year
  Sex: Female
  Weight: 65.8 kg

DRUGS (4)
  1. TEKTURNA [Suspect]
     Indication: HYPERTENSION
     Dosage: 150 MG, QD, ORAL
     Route: 048
     Dates: start: 20070522
  2. TOFRANIL [Concomitant]
  3. LOVASTAN (LOVASTATIN) [Concomitant]
  4. ACTONEL [Concomitant]

REACTIONS (1)
  - HEADACHE [None]
